FAERS Safety Report 24922915 (Version 11)
Quarter: 2025Q4

REPORT INFORMATION
  Report Type: Report from Study
  Country: US (occurrence: US)
  Receive Date: 20250204
  Receipt Date: 20251212
  Transmission Date: 20260117
  Serious: Yes (Hospitalization, Other)
  Sender: PFIZER
  Company Number: US-PFIZER INC-PV202400167920

PATIENT
  Age: 81 Year
  Sex: Female
  Weight: 54.875 kg

DRUGS (3)
  1. PREMARIN [Suspect]
     Active Substance: ESTROGENS, CONJUGATED
     Indication: Hormone replacement therapy
     Dosage: UNK
  2. PREMARIN [Suspect]
     Active Substance: ESTROGENS, CONJUGATED
     Dosage: 0.9 MG, DAILY
     Route: 048
  3. PREMARIN [Suspect]
     Active Substance: ESTROGENS, CONJUGATED
     Dosage: 1 TAB ONCE A DAY
     Route: 048

REACTIONS (8)
  - Foot operation [Unknown]
  - Shoulder arthroplasty [Unknown]
  - Monoplegia [Unknown]
  - Head injury [Unknown]
  - Blood pressure increased [Unknown]
  - Fine motor skill dysfunction [Unknown]
  - Nerve injury [Unknown]
  - Hypoaesthesia [Unknown]

NARRATIVE: CASE EVENT DATE: 20250129
